FAERS Safety Report 11538728 (Version 1)
Quarter: 2015Q3

REPORT INFORMATION
  Report Type: Spontaneous
  Country: None (occurrence: None)
  Receive Date: 20150921
  Receipt Date: 20150921
  Transmission Date: 20151125
  Serious: Yes (Disabling)
  Sender: FDA-Public Use
  Company Number: None

PATIENT
  Age: 33 Year
  Sex: Male
  Weight: 136.08 kg

DRUGS (1)
  1. LEVAQUIN [Suspect]
     Active Substance: LEVOFLOXACIN
     Indication: EAR INFECTION
     Dosage: 1 PILL
     Route: 048
     Dates: start: 20150520, end: 20150521

REACTIONS (4)
  - Insomnia [None]
  - Paraesthesia [None]
  - Anxiety [None]
  - Tendon pain [None]

NARRATIVE: CASE EVENT DATE: 20150520
